FAERS Safety Report 20536126 (Version 1)
Quarter: 2022Q1

REPORT INFORMATION
  Report Type: Spontaneous
  Country: US (occurrence: None)
  Receive Date: 20220302
  Receipt Date: 20220302
  Transmission Date: 20220423
  Serious: No
  Sender: FDA-Public Use
  Company Number: US-ROCHE-2805510

PATIENT
  Age: 9 Year
  Sex: Male
  Weight: 24.516 kg

DRUGS (3)
  1. NUTROPIN [Suspect]
     Active Substance: SOMATROPIN
     Indication: Growth hormone deficiency
     Dosage: ON 5 DAYS A WEEK, OFF ON THE WEEKENDS, GREEN PEN
     Route: 058
     Dates: start: 2019
  2. NUTROPIN [Suspect]
     Active Substance: SOMATROPIN
  3. CLARITIN [Concomitant]
     Active Substance: LORATADINE
     Indication: Hypersensitivity

REACTIONS (2)
  - Intercepted product storage error [Unknown]
  - No adverse event [Unknown]

NARRATIVE: CASE EVENT DATE: 20210403
